FAERS Safety Report 19041515 (Version 3)
Quarter: 2021Q1

REPORT INFORMATION
  Report Type: Report from Study
  Country: None (occurrence: CH)
  Receive Date: 20210323
  Receipt Date: 20210330
  Transmission Date: 20210420
  Serious: Yes (Hospitalization, Other)
  Sender: FDA-Public Use
  Company Number: CH-ABBVIE-21K-151-3807199-00

PATIENT
  Sex: Male

DRUGS (5)
  1. DUODOPA [Suspect]
     Active Substance: CARBIDOPA\LEVODOPA
     Indication: PARKINSON^S DISEASE
     Dosage: MD: 12 ML, CRD: 4.5 ML/H, CRN: 0 ML/H, ED: 0.5 ML 16 H THERAPY
     Route: 050
     Dates: start: 20200805
  2. DUODOPA [Suspect]
     Active Substance: CARBIDOPA\LEVODOPA
     Dosage: MD: 12 ML, CRD: 5 ML/H (INCREASED FOR 3H), CRN: 0 ML/H, ED: 1.5 ML 16 H THERAPY
     Route: 050
  3. DUODOPA [Suspect]
     Active Substance: CARBIDOPA\LEVODOPA
     Dosage: MD: 12 ML, CRD: 5 ML/H, CRN: 0 ML/H, ED: 1 ML
     Route: 050
     Dates: start: 20210304
  4. DUODOPA [Suspect]
     Active Substance: CARBIDOPA\LEVODOPA
     Dosage: MD: 12 ML, CRD: 4.8 ML/H, CRN: 0 ML/H, ED: 0.5 ML 16 H THERAPY
     Route: 050
  5. MADOPAR [Suspect]
     Active Substance: BENSERAZIDE HYDROCHLORIDE\LEVODOPA
     Indication: PRODUCT USED FOR UNKNOWN INDICATION
     Route: 048

REACTIONS (14)
  - Obstruction [Unknown]
  - Dysphagia [Not Recovered/Not Resolved]
  - Speech disorder [Unknown]
  - Gastrooesophageal reflux disease [Not Recovered/Not Resolved]
  - Mobility decreased [Unknown]
  - Therapeutic product effect incomplete [Unknown]
  - Respiratory tract infection [Recovered/Resolved]
  - Drug ineffective [Unknown]
  - Fatigue [Not Recovered/Not Resolved]
  - General physical health deterioration [Unknown]
  - Gait disturbance [Not Recovered/Not Resolved]
  - Sleep disorder [Not Recovered/Not Resolved]
  - Disorganised speech [Not Recovered/Not Resolved]
  - Bradykinesia [Not Recovered/Not Resolved]
